FAERS Safety Report 20321707 (Version 1)
Quarter: 2022Q1

REPORT INFORMATION
  Report Type: Spontaneous
  Country: CH (occurrence: CH)
  Receive Date: 20220111
  Receipt Date: 20220111
  Transmission Date: 20220424
  Serious: No
  Sender: FDA-Public Use
  Company Number: CH-PFIZER INC-202200017202

PATIENT
  Sex: Female

DRUGS (1)
  1. MEDROXYPROGESTERONE [Suspect]
     Active Substance: MEDROXYPROGESTERONE
     Dosage: UNK

REACTIONS (3)
  - Syringe issue [Unknown]
  - Needle issue [Unknown]
  - Drug dose omission by device [Unknown]
